FAERS Safety Report 8008635-4 (Version None)
Quarter: 2011Q4

REPORT INFORMATION
  Report Type: 
  Country: None (occurrence: None)
  Receive Date: 20111227
  Receipt Date: 20111213
  Transmission Date: 20120403
  Serious: Yes (Other)
  Sender: FDA-Public Use
  Company Number: NL-ROCHE-1024227

PATIENT
  Age: 48 Year
  Sex: Female

DRUGS (2)
  1. CAPECITABINE [Suspect]
     Indication: PRODUCT USED FOR UNKNOWN INDICATION
  2. FLUOROURACIL [Concomitant]

REACTIONS (3)
  - MUCOSAL INFLAMMATION [None]
  - BONE MARROW FAILURE [None]
  - DIHYDROPYRIMIDINE DEHYDROGENASE DEFICIENCY [None]
